FAERS Safety Report 24971220 (Version 1)
Quarter: 2025Q1

REPORT INFORMATION
  Report Type: Other
  Country: GB (occurrence: GB)
  Receive Date: 20250214
  Receipt Date: 20250214
  Transmission Date: 20250409
  Serious: Yes (Other)
  Sender: BIOCON
  Company Number: None

PATIENT

DRUGS (2)
  1. ADALIMUMAB [Suspect]
     Active Substance: ADALIMUMAB
     Indication: Adverse drug reaction
     Dosage: 40 MILLIGRAM, Q2W, (SUSPENSION FOR INJECTION)
     Route: 065
     Dates: start: 20240715, end: 20250204
  2. ADALIMUMAB [Suspect]
     Active Substance: ADALIMUMAB
     Indication: Crohn^s disease

REACTIONS (1)
  - Lymphocytosis [Unknown]

NARRATIVE: CASE EVENT DATE: 20250103
